FAERS Safety Report 6129449-6 (Version None)
Quarter: 2009Q1

REPORT INFORMATION
  Report Type: 
  Country: None (occurrence: None)
  Receive Date: 20090324
  Receipt Date: 20090312
  Transmission Date: 20090719
  Serious: Yes (Other)
  Sender: FDA-Public Use
  Company Number: BR-PFIZER INC-2009183685

PATIENT

DRUGS (3)
  1. MEDROXYPROGESTERONE AND MEDROXYPROGESTERONE ACETATE [Suspect]
     Indication: OFF LABEL USE
     Dosage: UNK
     Dates: start: 20080101
  2. MEDROXYPROGESTERONE AND MEDROXYPROGESTERONE ACETATE [Suspect]
     Indication: MENORRHAGIA
  3. MEDROXYPROGESTERONE AND MEDROXYPROGESTERONE ACETATE [Suspect]
     Indication: UTERINE LEIOMYOMA

REACTIONS (3)
  - HAEMORRHAGE [None]
  - HYPERTENSION [None]
  - URINARY TRACT INFECTION [None]
